FAERS Safety Report 16237372 (Version 3)
Quarter: 2019Q2

REPORT INFORMATION
  Report Type: Report from Study
  Country: CA (occurrence: CA)
  Receive Date: 20190425
  Receipt Date: 20190628
  Transmission Date: 20190711
  Serious: Yes (Hospitalization, Other)
  Sender: FDA-Public Use
  Company Number: CA-ROCHE-2305900

PATIENT
  Sex: Female

DRUGS (4)
  1. ALECENSARO [Suspect]
     Active Substance: ALECTINIB
     Dosage: DRUG DOSE FIRST ADMINISTERED IS
     Route: 048
  2. ALECENSARO [Suspect]
     Active Substance: ALECTINIB
     Dosage: DRUG DOSE FIRST ADMINISTERED IS 0 MG MILLIGRAM
     Route: 048
  3. ALECENSARO [Suspect]
     Active Substance: ALECTINIB
     Route: 048
     Dates: start: 20190530
  4. ALECENSARO [Suspect]
     Active Substance: ALECTINIB
     Indication: NON-SMALL CELL LUNG CANCER
     Dosage: DRUG DOSE FIRST ADMINISTERED IS 600 MG MILLIGRAM
     Route: 048

REACTIONS (1)
  - Pleural effusion [Unknown]
